FAERS Safety Report 10567926 (Version 3)
Quarter: 2014Q4

REPORT INFORMATION
  Report Type: Spontaneous
  Country: US (occurrence: US)
  Receive Date: 20141106
  Receipt Date: 20141119
  Transmission Date: 20150529
  Serious: Yes (Hospitalization)
  Sender: FDA-Public Use
  Company Number: US-JNJFOC-20140926778

PATIENT
  Age: 85 Year
  Sex: Female
  Weight: 65 kg

DRUGS (2)
  1. IMBRUVICA [Suspect]
     Active Substance: IBRUTINIB
     Indication: CHRONIC LYMPHOCYTIC LEUKAEMIA
     Route: 048
     Dates: start: 20140527, end: 20140826
  2. LEUKERAN [Concomitant]
     Active Substance: CHLORAMBUCIL
     Dates: start: 201401, end: 20140805

REACTIONS (4)
  - Drug ineffective [Unknown]
  - Acute myocardial infarction [Recovered/Resolved]
  - Fatigue [Not Recovered/Not Resolved]
  - Atrial fibrillation [Recovered/Resolved]

NARRATIVE: CASE EVENT DATE: 2014
